FAERS Safety Report 12274412 (Version 1)
Quarter: 2016Q2

REPORT INFORMATION
  Report Type: Spontaneous
  Country: US (occurrence: US)
  Receive Date: 20160415
  Receipt Date: 20160415
  Transmission Date: 20160815
  Serious: No
  Sender: FDA-Public Use
  Company Number: US-ALLERGAN-1512835US

PATIENT
  Age: 30 Year
  Sex: Female
  Weight: 43.99 kg

DRUGS (2)
  1. LATISSE [Suspect]
     Active Substance: BIMATOPROST
     Indication: GROWTH OF EYELASHES
     Dosage: 3 GTT, QD
     Route: 003
     Dates: start: 20150626, end: 20150704
  2. NIMESULIDE [Concomitant]
     Active Substance: NIMESULIDE
     Indication: DYSMENORRHOEA
     Dosage: 100 MG, QD
     Route: 048

REACTIONS (2)
  - Intentional overdose [Unknown]
  - Headache [Recovered/Resolved]

NARRATIVE: CASE EVENT DATE: 20150703
